FAERS Safety Report 11914488 (Version 2)
Quarter: 2016Q3

REPORT INFORMATION
  Report Type: Spontaneous
  Country: US (occurrence: US)
  Receive Date: 20160113
  Receipt Date: 20160902
  Transmission Date: 20161109
  Serious: Yes (Other)
  Sender: FDA-Public Use
  Company Number: US-BAYER-2016-005438

PATIENT
  Age: 38 Year
  Sex: Female

DRUGS (22)
  1. MIRENA [Suspect]
     Active Substance: LEVONORGESTREL
     Dosage: 20 MCG/24HR, CONT
     Route: 015
     Dates: start: 20100824, end: 20120404
  2. INDERAL [Concomitant]
     Active Substance: PROPRANOLOL HYDROCHLORIDE
  3. PEPCID [Concomitant]
     Active Substance: FAMOTIDINE
  4. ZOFRAN [Concomitant]
     Active Substance: ONDANSETRON HYDROCHLORIDE
  5. LORATADINE. [Concomitant]
     Active Substance: LORATADINE
  6. OMEPRAZOLE. [Concomitant]
     Active Substance: OMEPRAZOLE
  7. TOPAMAX [Concomitant]
     Active Substance: TOPIRAMATE
  8. ONDANSETRON [Concomitant]
     Active Substance: ONDANSETRON
  9. PERCOCET [Concomitant]
     Active Substance: ACETAMINOPHEN\OXYCODONE HYDROCHLORIDE
  10. FIORICET [Concomitant]
     Active Substance: ACETAMINOPHEN\BUTALBITAL\CAFFEINE
  11. GLUCOSAMINE [Concomitant]
     Active Substance: GLUCOSAMINE
  12. MOTRIN [Concomitant]
     Active Substance: IBUPROFEN
  13. GLUCOPHAGE [Concomitant]
     Active Substance: METFORMIN HYDROCHLORIDE
  14. NORCO [Concomitant]
     Active Substance: ACETAMINOPHEN\HYDROCODONE BITARTRATE
  15. METFORMIN [Concomitant]
     Active Substance: METFORMIN HYDROCHLORIDE
  16. ZYRTEC [Concomitant]
     Active Substance: CETIRIZINE HYDROCHLORIDE
  17. IBUPROFEN. [Concomitant]
     Active Substance: IBUPROFEN
  18. VALIUM [Concomitant]
     Active Substance: DIAZEPAM
  19. MEDROL [Concomitant]
     Active Substance: METHYLPREDNISOLONE
  20. PROPRANOLOL [Concomitant]
     Active Substance: PROPRANOLOL\PROPRANOLOL HYDROCHLORIDE
  21. PROMETHAZINE [Concomitant]
     Active Substance: PROMETHAZINE\PROMETHAZINE HYDROCHLORIDE
  22. OMEGA-3 FATTY ACIDS [Concomitant]
     Active Substance: OMEGA-3 FATTY ACIDS

REACTIONS (6)
  - Benign intracranial hypertension [None]
  - Headache [None]
  - Speech disorder [None]
  - Vertigo [None]
  - Gait disturbance [None]
  - Vision blurred [None]

NARRATIVE: CASE EVENT DATE: 2010
